FAERS Safety Report 5606697-2 (Version None)
Quarter: 2008Q1

REPORT INFORMATION
  Report Type: 
  Country: None (occurrence: None)
  Receive Date: 20080129
  Receipt Date: 20071001
  Transmission Date: 20080703
  Serious: No
  Sender: FDA-Public Use
  Company Number: A0685340A

PATIENT
  Age: 36 Year
  Sex: Male

DRUGS (1)
  1. EPIVIR [Suspect]
     Indication: PROPHYLAXIS
     Dosage: 150MG TWICE PER DAY
     Route: 048
     Dates: start: 20060901

REACTIONS (1)
  - SPERMATOZOA MORPHOLOGY ABNORMAL [None]
